FAERS Safety Report 17601853 (Version 1)
Quarter: 2020Q1

REPORT INFORMATION
  Report Type: Spontaneous
  Country: US (occurrence: US)
  Receive Date: 20200330
  Receipt Date: 20200330
  Transmission Date: 20200409
  Serious: No
  Sender: FDA-Public Use
  Company Number: US-ELI_LILLY_AND_COMPANY-US202003011099

PATIENT
  Sex: Female
  Weight: 72 kg

DRUGS (7)
  1. ADCIRCA [Suspect]
     Active Substance: TADALAFIL
     Indication: PULMONARY ARTERIAL HYPERTENSION
     Dosage: UNK, UNKNOWN
     Route: 065
  2. ORENITRAM [Suspect]
     Active Substance: TREPROSTINIL
     Indication: PULMONARY ARTERIAL HYPERTENSION
     Dosage: 9 MG, EVERY 8 HRS
     Route: 048
     Dates: start: 20171114
  3. ORENITRAM [Suspect]
     Active Substance: TREPROSTINIL
     Dosage: 2.5 MG, EVERY 8 HRS
     Route: 048
     Dates: start: 20171114
  4. ORENITRAM [Suspect]
     Active Substance: TREPROSTINIL
     Dosage: 9 MG, EVERY 8 HRS
     Route: 048
     Dates: start: 20171114
  5. ORENITRAM [Suspect]
     Active Substance: TREPROSTINIL
     Dosage: 9 MG, EVERY 8 HRS
     Route: 048
     Dates: start: 20171114
  6. LETAIRIS [Concomitant]
     Active Substance: AMBRISENTAN
     Indication: PULMONARY ARTERIAL HYPERTENSION
     Dosage: UNK, UNKNOWN
     Route: 065
  7. ORENITRAM [Suspect]
     Active Substance: TREPROSTINIL
     Dosage: 9 MG, EVERY 8 HRS
     Route: 048
     Dates: start: 20171114

REACTIONS (1)
  - Fungal infection [Unknown]
